FAERS Safety Report 9922960 (Version 1)
Quarter: 2014Q1

REPORT INFORMATION
  Report Type: Spontaneous
  Country: US (occurrence: US)
  Receive Date: 20140225
  Receipt Date: 20140225
  Transmission Date: 20141002
  Serious: No
  Sender: FDA-Public Use
  Company Number: US-B.I. PHARMACEUTICALS,INC./RIDGEFIELD-2013-BI-40118BP

PATIENT
  Age: 82 Year
  Sex: Male

DRUGS (1)
  1. FLOMAX CAPSULES [Suspect]
     Indication: BENIGN PROSTATIC HYPERPLASIA
     Route: 065

REACTIONS (4)
  - Therapeutic response unexpected [Unknown]
  - Arrhythmia supraventricular [Recovered/Resolved]
  - Ventricular arrhythmia [Recovered/Resolved]
  - Blood pressure decreased [Recovered/Resolved]
